FAERS Safety Report 9420652 (Version 2)
Quarter: 2013Q3

REPORT INFORMATION
  Report Type: Spontaneous
  Country: US (occurrence: US)
  Receive Date: 20130725
  Receipt Date: 20130814
  Transmission Date: 20140515
  Serious: Yes (Hospitalization)
  Sender: FDA-Public Use
  Company Number: US-B.I. PHARMACEUTICALS,INC./RIDGEFIELD-2013-BI-15327BP

PATIENT
  Age: 64 Year
  Sex: Male
  Weight: 108.86 kg

DRUGS (13)
  1. PRADAXA [Suspect]
     Indication: ATRIAL FIBRILLATION
     Dosage: 150 MG
     Dates: start: 20110424
  2. NOVOLOG [Concomitant]
  3. DIGOXIN [Concomitant]
     Dosage: 0.0625 MG
  4. NEPHRO-VITE [Concomitant]
  5. SIMVASTATIN [Concomitant]
     Indication: CORONARY ARTERY DISEASE
     Dosage: 10 MG
  6. ALLOPURINOL [Concomitant]
     Dosage: 100 MG
  7. GABAPENTIN [Concomitant]
     Dosage: 100 MG
  8. GLIPIZIDE [Concomitant]
     Dosage: 10 MG
  9. LEVEMIR [Concomitant]
     Dosage: 30 U
  10. SENOKOT [Concomitant]
     Indication: CONSTIPATION
  11. MIRALAX [Concomitant]
     Indication: CONSTIPATION
  12. LASIX [Concomitant]
     Indication: CONSTIPATION
     Dosage: 80 MG
  13. AMIODARONE [Concomitant]
     Indication: ATRIAL FIBRILLATION
     Dosage: 400 MG

REACTIONS (1)
  - Haemothorax [Not Recovered/Not Resolved]
